FAERS Safety Report 4899146-3 (Version None)
Quarter: 2006Q1

REPORT INFORMATION
  Report Type: 
  Country: None (occurrence: None)
  Receive Date: 20060126
  Receipt Date: 20060116
  Transmission Date: 20060701
  Serious: Yes (Hospitalization, Disabling, Other)
  Sender: FDA-Public Use
  Company Number: 2006BH000611

PATIENT
  Age: 6 Year
  Sex: Female

DRUGS (3)
  1. GAMMAGARD [Suspect]
     Indication: THROMBOCYTOPENIC PURPURA
     Dosage: 1 GM/KG; 2 DAY; IV
     Route: 042
  2. IBUPROFEN [Concomitant]
  3. PREDNISONE [Concomitant]

REACTIONS (27)
  - ARTERIAL OCCLUSIVE DISEASE [None]
  - ARTERIAL THROMBOSIS [None]
  - ARTHRALGIA [None]
  - ARTHRITIS [None]
  - BLOOD IMMUNOGLOBULIN G INCREASED [None]
  - COMPLEMENT FACTOR DECREASED [None]
  - CONDITION AGGRAVATED [None]
  - CYANOSIS [None]
  - DRY GANGRENE [None]
  - FOOT AMPUTATION [None]
  - IMMUNE COMPLEX LEVEL INCREASED [None]
  - ISCHAEMIC LIMB PAIN [None]
  - MIGRAINE [None]
  - PAIN [None]
  - PARAESTHESIA [None]
  - PERICARDITIS [None]
  - PERIPHERAL COLDNESS [None]
  - PERIPHERAL ISCHAEMIA [None]
  - PLEURISY [None]
  - POOR PERIPHERAL CIRCULATION [None]
  - PULSE ABSENT [None]
  - PYREXIA [None]
  - RUSSELL'S VIPER VENOM TIME ABNORMAL [None]
  - SKIN ULCER [None]
  - VASCULITIC RASH [None]
  - VASCULITIS [None]
  - VENOUS THROMBOSIS [None]
